FAERS Safety Report 6650073-0 (Version None)
Quarter: 2010Q1

REPORT INFORMATION
  Report Type: 
  Country: None (occurrence: None)
  Receive Date: 20100322
  Receipt Date: 20100308
  Transmission Date: 20100710
  Serious: Yes (Other)
  Sender: FDA-Public Use
  Company Number: 1-21858021

PATIENT
  Age: 71 Year
  Sex: Female

DRUGS (2)
  1. CEFTAZIDIME [Suspect]
     Indication: SQUAMOUS CELL CARCINOMA
  2. CLINDAMYCIN [Suspect]
     Indication: SQUAMOUS CELL CARCINOMA

REACTIONS (5)
  - ERYTHEMA [None]
  - LYMPHOCYTE STIMULATION TEST POSITIVE [None]
  - MICTURITION FREQUENCY DECREASED [None]
  - PYREXIA [None]
  - RASH PUSTULAR [None]
